FAERS Safety Report 15120743 (Version 2)
Quarter: 2018Q3

REPORT INFORMATION
  Report Type: Spontaneous
  Country: US (occurrence: US)
  Receive Date: 20180709
  Receipt Date: 20180727
  Transmission Date: 20181010
  Serious: Yes (Hospitalization, Other)
  Sender: FDA-Public Use
  Company Number: US-SA-2018SA160556

PATIENT
  Age: 76 Year
  Sex: Female

DRUGS (1)
  1. PLAVIX [Suspect]
     Active Substance: CLOPIDOGREL BISULFATE
     Dosage: UNK
     Dates: start: 1999, end: 2006

REACTIONS (3)
  - Gastrointestinal haemorrhage [Unknown]
  - Blood iron decreased [Unknown]
  - Arthritis [Unknown]

NARRATIVE: CASE EVENT DATE: 2006
